FAERS Safety Report 6851213-0 (Version None)
Quarter: 2010Q3

REPORT INFORMATION
  Report Type: 
  Country: None (occurrence: None)
  Receive Date: 20100716
  Receipt Date: 20100707
  Transmission Date: 20110219
  Serious: Yes (Other)
  Sender: FDA-Public Use
  Company Number: GB-ABBOTT-10P-167-0622153-00

PATIENT
  Age: 26 Year
  Sex: Male

DRUGS (2)
  1. PROSTAP 3 [Suspect]
     Indication: TRANSGENDER HORMONAL THERAPY
     Route: 058
  2. EVOREL [Concomitant]
     Indication: PRODUCT USED FOR UNKNOWN INDICATION

REACTIONS (4)
  - DRY SKIN [None]
  - EYE SWELLING [None]
  - SKIN TIGHTNESS [None]
  - VISION BLURRED [None]
